FAERS Safety Report 6243074-8 (Version None)
Quarter: 2009Q2

REPORT INFORMATION
  Report Type: 
  Country: None (occurrence: None)
  Receive Date: 20090624
  Receipt Date: 20090618
  Transmission Date: 20091009
  Serious: Yes (Death, Hospitalization, Other)
  Sender: FDA-Public Use
  Company Number: ES-CELGENEUS-144-21880-09061434

PATIENT

DRUGS (5)
  1. REVLIMID [Suspect]
     Indication: MULTIPLE MYELOMA
     Route: 048
  2. HEPARIN [Concomitant]
     Indication: THROMBOSIS PROPHYLAXIS
     Route: 065
  3. DEXAMETHASONE [Concomitant]
     Indication: DRUG USE FOR UNKNOWN INDICATION
     Route: 065
  4. ANTIPLATELET AGENT [Concomitant]
     Indication: THROMBOSIS PROPHYLAXIS
     Route: 065
  5. ANTICOAGULANT [Concomitant]
     Indication: THROMBOSIS PROPHYLAXIS
     Route: 048

REACTIONS (8)
  - ARTERIOVENOUS FISTULA SITE INFECTION [None]
  - ARTHRITIS BACTERIAL [None]
  - BACTERAEMIA [None]
  - DISEASE PROGRESSION [None]
  - HEPATOTOXICITY [None]
  - INFECTION [None]
  - NEUTROPENIA [None]
  - SEPSIS [None]
